FAERS Safety Report 9669507 (Version 1)
Quarter: 2013Q4

REPORT INFORMATION
  Report Type: Spontaneous
  Country: US (occurrence: None)
  Receive Date: 20131104
  Receipt Date: 20131104
  Transmission Date: 20140711
  Serious: No
  Sender: FDA-Public Use
  Company Number: None

PATIENT
  Age: 45 Year
  Sex: Female
  Weight: 74.39 kg

DRUGS (1)
  1. LYRICA [Suspect]
     Indication: NEURALGIA
     Route: 048

REACTIONS (7)
  - Feeling abnormal [None]
  - Vision blurred [None]
  - Impaired driving ability [None]
  - Abdominal pain [None]
  - Constipation [None]
  - Dry mouth [None]
  - Dry eye [None]
